FAERS Safety Report 6875629-1 (Version None)
Quarter: 2010Q3

REPORT INFORMATION
  Report Type: 
  Country: None (occurrence: None)
  Receive Date: 20100727
  Receipt Date: 20100713
  Transmission Date: 20110219
  Serious: Yes (Death, Hospitalization, Disabling)
  Sender: FDA-Public Use
  Company Number: AU-ASTRAZENECA-2010SE32593

PATIENT
  Age: 82 Year
  Sex: Female

DRUGS (2)
  1. IRESSA [Suspect]
     Route: 048
     Dates: start: 20100521, end: 20100524
  2. IRESSA [Suspect]
     Route: 048
     Dates: start: 20100602, end: 20100627

REACTIONS (3)
  - NAUSEA [None]
  - NEURALGIA [None]
  - VOMITING [None]
